FAERS Safety Report 7145092-4 (Version None)
Quarter: 2010Q4

REPORT INFORMATION
  Report Type: 
  Country: None (occurrence: None)
  Receive Date: 20101124
  Receipt Date: 20101109
  Transmission Date: 20110411
  Serious: Yes (Other)
  Sender: FDA-Public Use
  Company Number: 2010EU004980

PATIENT
  Age: 53 Year
  Sex: Female
  Weight: 110 kg

DRUGS (8)
  1. MYCAMINE [Suspect]
     Indication: CANDIDIASIS
     Dosage: 100 MG, IV NOS
     Route: 042
     Dates: start: 20100910, end: 20100914
  2. TAZOCILLINE (PIPERACILLIN SODIUM, TAZOBACTAM SODIUM) [Suspect]
     Indication: LUNG DISORDER
     Dosage: 16 G, IV NOS
     Route: 042
     Dates: start: 20100910, end: 20100914
  3. INEXIUM (ESOMEPRAZOLE SODIUM) [Concomitant]
  4. VANCOMYCIN [Concomitant]
  5. MIDAZOLAM [Concomitant]
  6. MORPHINE [Concomitant]
  7. HEPARIN [Concomitant]
  8. HYDROCORTISONE [Concomitant]

REACTIONS (7)
  - ATELECTASIS [None]
  - BLOOD CREATININE INCREASED [None]
  - CHOLESTASIS [None]
  - CONDITION AGGRAVATED [None]
  - HEPATIC FAILURE [None]
  - HEPATOTOXICITY [None]
  - PLEURAL EFFUSION [None]
